FAERS Safety Report 8974959 (Version 1)
Quarter: 2012Q4

REPORT INFORMATION
  Report Type: 
  Country: GR (occurrence: GR)
  Receive Date: 20121219
  Receipt Date: 20121219
  Transmission Date: 20130627
  Serious: Yes (Other)
  Sender: FDA-Public Use
  Company Number: PHHY2012GR116801

PATIENT
  Age: 35 Year
  Sex: Female

DRUGS (3)
  1. LAMISIL [Suspect]
     Indication: ONYCHOMYCOSIS
     Dosage: 250 mg, QD
  2. LAMISIL [Suspect]
     Indication: ASPERGILLOSIS
  3. T4 [Concomitant]
     Indication: AUTOIMMUNE THYROIDITIS
     Dosage: UNK UKN, UNK

REACTIONS (4)
  - Hemiparesis [Recovering/Resolving]
  - Hemiplegia [Recovering/Resolving]
  - Ageusia [Recovering/Resolving]
  - Headache [Recovering/Resolving]
